FAERS Safety Report 9091087 (Version 3)
Quarter: 2013Q2

REPORT INFORMATION
  Report Type: Spontaneous
  Country: US (occurrence: US)
  Receive Date: 20130131
  Receipt Date: 20130403
  Transmission Date: 20140414
  Serious: Yes (Other)
  Sender: FDA-Public Use
  Company Number: US-PFIZER INC-2013039182

PATIENT
  Age: 66 Year
  Sex: Female
  Weight: 68.93 kg

DRUGS (9)
  1. ATORVASTATIN CALCIUM [Suspect]
     Indication: BLOOD CHOLESTEROL INCREASED
     Dosage: 20 MG, 1X/DAY
     Route: 048
     Dates: start: 20121227, end: 20130117
  2. ATORVASTATIN CALCIUM [Suspect]
     Indication: LIPIDS INCREASED
  3. PRAVASTATIN SODIUM [Suspect]
     Indication: BLOOD CHOLESTEROL INCREASED
     Dosage: UNK
  4. WELCHOL [Suspect]
     Indication: BLOOD CHOLESTEROL INCREASED
     Dosage: UNK, DAILY
     Dates: start: 201301, end: 201301
  5. METOPROLOL [Concomitant]
     Indication: HYPERTENSION
     Dosage: 100 MG, 2X/DAY
     Dates: start: 20111110
  6. BENAZEPRIL [Concomitant]
     Indication: HYPERTENSION
     Dosage: UNK
  7. CARDURA [Concomitant]
     Indication: HYPERTENSION
     Dosage: 120 MG, 1X/DAY
  8. METHIMAZOLE [Concomitant]
     Indication: HYPERTHYROIDISM
     Dosage: 25 MG, 1X/DAY
     Dates: start: 20120529
  9. CHLORTHALIDONE [Concomitant]
     Indication: HYPERTENSION
     Dosage: 25 MG, 1X/DAY
     Dates: start: 20121017

REACTIONS (4)
  - Abasia [Recovered/Resolved]
  - Myalgia [Recovered/Resolved]
  - Muscular weakness [Recovered/Resolved]
  - Arthralgia [Recovered/Resolved]
